FAERS Safety Report 9175209 (Version 3)
Quarter: 2013Q4

REPORT INFORMATION
  Report Type: Spontaneous
  Country: US (occurrence: US)
  Receive Date: 20130320
  Receipt Date: 20131018
  Transmission Date: 20140711
  Serious: No
  Sender: FDA-Public Use
  Company Number: US-ASTRAZENECA-2013SE13878

PATIENT
  Age: 58 Year
  Sex: Male
  Weight: 80.3 kg

DRUGS (4)
  1. PULMICORT FLEXHALER [Suspect]
     Indication: EMPHYSEMA
     Dosage: TWO PUFFS TWICE DAILY - 180 MCGS
     Route: 055
     Dates: start: 20130205, end: 201302
  2. PULMICORT FLEXHALER [Suspect]
     Indication: ASTHMA
     Dosage: TWO PUFFS TWICE DAILY - 180 MCGS
     Route: 055
     Dates: start: 20130205, end: 201302
  3. COMBIVENT [Concomitant]
     Indication: EMPHYSEMA
  4. EYE DROPS [Concomitant]

REACTIONS (2)
  - Malaise [Unknown]
  - Circumstance or information capable of leading to medication error [Unknown]
